FAERS Safety Report 4871731-4 (Version None)
Quarter: 2006Q1

REPORT INFORMATION
  Report Type: 
  Country: None (occurrence: None)
  Receive Date: 20060104
  Receipt Date: 20050214
  Transmission Date: 20060701
  Serious: No
  Sender: FDA-Public Use
  Company Number: US-BRISTOL-MYERS SQUIBB COMPANY-12863551

PATIENT
  Age: 36 Year
  Sex: Female
  Weight: 43 kg

DRUGS (4)
  1. TRAZODONE HCL [Suspect]
     Indication: ANXIETY
     Dosage: THERAPY DURATION - 1 TO 2 WEEKS TAKEN AT BEDTIME (HS); DISCONTINUED 5 WEEKS AGO
     Route: 048
     Dates: start: 20040101, end: 20040101
  2. TRAZODONE HCL [Suspect]
     Indication: INSOMNIA
     Dosage: THERAPY DURATION - 1 TO 2 WEEKS TAKEN AT BEDTIME (HS); DISCONTINUED 5 WEEKS AGO
     Route: 048
     Dates: start: 20040101, end: 20040101
  3. TRANQUILIZERS [Suspect]
  4. ATIVAN [Concomitant]
     Route: 048

REACTIONS (4)
  - CRYING [None]
  - DEPRESSION [None]
  - DISTURBANCE IN ATTENTION [None]
  - MOOD SWINGS [None]
